FAERS Safety Report 13132342 (Version 2)
Quarter: 2017Q1

REPORT INFORMATION
  Report Type: Report from Study
  Country: None (occurrence: CH)
  Receive Date: 20170120
  Receipt Date: 20170214
  Transmission Date: 20170428
  Serious: Yes (Other)
  Sender: FDA-Public Use
  Company Number: CH-ABBVIE-17P-151-1846058-00

PATIENT
  Sex: Male

DRUGS (1)
  1. DUODOPA [Suspect]
     Active Substance: CARBIDOPA\LEVODOPA
     Indication: PARKINSON^S DISEASE
     Dosage: MORNING DOSE: 8ML, CONTINUOUS RATE DAY: 4.0 ML/H, CONTINUOUS RATE NIGHT: 4.0 ML/H
     Route: 050

REACTIONS (2)
  - Abdominal pain [Unknown]
  - Pneumonia [Unknown]
